FAERS Safety Report 5309264-3 (Version None)
Quarter: 2007Q1

REPORT INFORMATION
  Report Type: 
  Country: None (occurrence: None)
  Receive Date: 20070201
  Receipt Date: 20061229
  Transmission Date: 20070707
  Serious: No
  Sender: FDA-Public Use
  Company Number: 2007PV027600

PATIENT
  Age: 67 Year
  Sex: Female
  Weight: 113.3993 kg

DRUGS (8)
  1. BYETTA [Suspect]
     Indication: DIABETES MELLITUS NON-INSULIN-DEPENDENT
     Dosage: SEE IMAGE
     Route: 058
     Dates: start: 20060301, end: 20060501
  2. BYETTA [Suspect]
     Indication: DIABETES MELLITUS NON-INSULIN-DEPENDENT
     Dosage: SEE IMAGE
     Route: 058
     Dates: start: 20060501, end: 20060801
  3. BYETTA [Suspect]
     Indication: DIABETES MELLITUS NON-INSULIN-DEPENDENT
     Dosage: SEE IMAGE
     Route: 058
     Dates: start: 20060801
  4. GLYBURIDE [Concomitant]
  5. ACTOS [Concomitant]
  6. GLUCOPHASE [Concomitant]
  7. RELEASE [Concomitant]
  8. LISINIPRIL [Concomitant]

REACTIONS (5)
  - BLOOD GLUCOSE [None]
  - DYSPEPSIA [None]
  - FEELING COLD [None]
  - NAUSEA [None]
  - TREMOR [None]
